FAERS Safety Report 8175654-7 (Version None)
Quarter: 2012Q1

REPORT INFORMATION
  Report Type: 
  Country: None (occurrence: None)
  Receive Date: 20120301
  Receipt Date: 20120224
  Transmission Date: 20120608
  Serious: No
  Sender: FDA-Public Use
  Company Number: US-BIOGENIDEC-2012BI007061

PATIENT
  Age: 45 Year
  Sex: Female

DRUGS (1)
  1. TYSABRI [Suspect]
     Indication: MULTIPLE SCLEROSIS
     Route: 042
     Dates: start: 20111109

REACTIONS (7)
  - ANOSMIA [None]
  - AGEUSIA [None]
  - BALANCE DISORDER [None]
  - ASTHMA [None]
  - EAR DISCOMFORT [None]
  - RASH [None]
  - VISUAL ACUITY REDUCED [None]
